FAERS Safety Report 15549497 (Version 2)
Quarter: 2018Q4

REPORT INFORMATION
  Report Type: Spontaneous
  Country: US (occurrence: US)
  Receive Date: 20181025
  Receipt Date: 20181226
  Transmission Date: 20190205
  Serious: Yes (Other)
  Sender: FDA-Public Use
  Company Number: US-PFIZER INC-2018429036

PATIENT
  Age: 87 Year
  Sex: Female
  Weight: 62.6 kg

DRUGS (3)
  1. LYRICA [Suspect]
     Active Substance: PREGABALIN
     Indication: PAIN IN EXTREMITY
     Dosage: 50 MG, UNK (WHEN SHE FEELS FUNNY HEADED SHE DROPS HER DOSAGE BACK TO 50MG)
  2. LYRICA [Suspect]
     Active Substance: PREGABALIN
     Indication: PAIN
  3. LYRICA [Suspect]
     Active Substance: PREGABALIN
     Indication: NEUROPATHY PERIPHERAL
     Dosage: 2 DF, 1X/DAY (SHE TRIES TO TAKE 2 LYRICA AT BEDTIME)

REACTIONS (9)
  - Feeling abnormal [Unknown]
  - Foot deformity [Unknown]
  - Feeling drunk [Unknown]
  - Croup infectious [Unknown]
  - Cardiac disorder [Unknown]
  - Dizziness [Unknown]
  - Hypoaesthesia [Unknown]
  - Insomnia [Unknown]
  - Arthritis [Unknown]
